FAERS Safety Report 7591702-7 (Version None)
Quarter: 2011Q3

REPORT INFORMATION
  Report Type: 
  Country: None (occurrence: None)
  Receive Date: 20110706
  Receipt Date: 20110622
  Transmission Date: 20111222
  Serious: Yes (Other)
  Sender: FDA-Public Use
  Company Number: US-BAYER-2011-054865

PATIENT
  Sex: Female

DRUGS (3)
  1. ADVIL LIQUI-GELS [Concomitant]
     Dosage: 4 DF, UNK
     Dates: start: 20110622
  2. ALEVE (CAPLET) [Suspect]
     Dosage: 880 MG, UNK
     Route: 048
     Dates: start: 20110622
  3. ACETAMINOPHEN [Concomitant]
     Dosage: 7 DF, UNK
     Dates: start: 20110622

REACTIONS (1)
  - UNEVALUABLE EVENT [None]
